FAERS Safety Report 4498599-2 (Version None)
Quarter: 2004Q4

REPORT INFORMATION
  Report Type: 
  Country: None (occurrence: None)
  Receive Date: 20041108
  Receipt Date: 20041024
  Transmission Date: 20050328
  Serious: Yes (Life-Threatening)
  Sender: FDA-Public Use
  Company Number: K200401659

PATIENT
  Age: 31 Year
  Sex: Female
  Weight: 59 kg

DRUGS (2)
  1. LEVOXYL [Suspect]
     Indication: THYROIDECTOMY
     Dosage: 100 MCG, QAM, ORAL
     Route: 048
     Dates: start: 19940101
  2. CYTOMEL [Concomitant]

REACTIONS (5)
  - APNOEA [None]
  - CHOKING [None]
  - OBSTRUCTIVE AIRWAYS DISORDER [None]
  - OESOPHAGEAL STENOSIS [None]
  - SENSATION OF FOREIGN BODY [None]
